FAERS Safety Report 16152667 (Version 1)
Quarter: 2019Q2

REPORT INFORMATION
  Report Type: Spontaneous
  Country: US (occurrence: US)
  Receive Date: 20190403
  Receipt Date: 20190403
  Transmission Date: 20190711
  Serious: No
  Sender: FDA-Public Use
  Company Number: US-ASTRAZENECA-2019SE37563

PATIENT
  Age: 20561 Day
  Sex: Female
  Weight: 47.6 kg

DRUGS (3)
  1. BEVESPI AEROSPHERE [Suspect]
     Active Substance: FORMOTEROL FUMARATE\GLYCOPYRROLATE
     Indication: CHRONIC OBSTRUCTIVE PULMONARY DISEASE
     Dosage: 9/4.8 MCGS TWO PUFFS TWICE DAILY
     Route: 055
     Dates: start: 20181103
  2. BEVESPI AEROSPHERE [Suspect]
     Active Substance: FORMOTEROL FUMARATE\GLYCOPYRROLATE
     Indication: EMPHYSEMA
     Dosage: 9/4.8 MCGS TWO PUFFS TWICE DAILY
     Route: 055
     Dates: start: 20181103
  3. OXYGEN. [Concomitant]
     Active Substance: OXYGEN
     Indication: DYSPNOEA
     Dosage: 2.0L CONTINUOUSLY
     Route: 045
     Dates: start: 201803

REACTIONS (4)
  - Feeling abnormal [Unknown]
  - Visual impairment [Unknown]
  - Feeling jittery [Unknown]
  - Palpitations [Unknown]
